FAERS Safety Report 22082862 (Version 2)
Quarter: 2024Q3

REPORT INFORMATION
  Report Type: Report from Study
  Country: US (occurrence: US)
  Receive Date: 20230310
  Receipt Date: 20240705
  Transmission Date: 20241017
  Serious: Yes (Other)
  Sender: ABBVIE
  Company Number: US-ABBVIE-4331944

PATIENT
  Age: 75 Year
  Sex: Female

DRUGS (2)
  1. HUMIRA [Suspect]
     Active Substance: ADALIMUMAB
     Indication: Psoriatic arthropathy
     Route: 058
  2. HUMIRA [Suspect]
     Active Substance: ADALIMUMAB
     Indication: Psoriatic arthropathy
     Dosage: CITRATE FREE, FORM STRENGTH 40 MILLIGRAM
     Route: 058
     Dates: start: 20200203

REACTIONS (13)
  - Gallbladder operation [Unknown]
  - Muscle spasms [Not Recovered/Not Resolved]
  - Sinusitis [Unknown]
  - Osteoporosis [Unknown]
  - Fibromyalgia [Not Recovered/Not Resolved]
  - Gastrointestinal disorder [Not Recovered/Not Resolved]
  - Injection site pain [Unknown]
  - Rubber sensitivity [Not Recovered/Not Resolved]
  - Drug resistance [Not Recovered/Not Resolved]
  - Asthma [Unknown]
  - Coronary artery bypass [Recovered/Resolved]
  - Swelling [Not Recovered/Not Resolved]
  - Therapeutic response shortened [Unknown]

NARRATIVE: CASE EVENT DATE: 20220101
